FAERS Safety Report 24245417 (Version 1)
Quarter: 2024Q3

REPORT INFORMATION
  Report Type: Spontaneous
  Country: FR (occurrence: None)
  Receive Date: 20240824
  Receipt Date: 20240824
  Transmission Date: 20241017
  Serious: Yes (Disabling)
  Sender: ASTRAZENECA
  Company Number: 2024A186244

PATIENT
  Age: 79 Year
  Sex: Female

DRUGS (1)
  1. CALQUENCE [Suspect]
     Active Substance: ACALABRUTINIB
     Indication: Chronic lymphocytic leukaemia
     Dosage: 100MG 2FOIS/J
     Route: 048
     Dates: start: 20240503, end: 20240529

REACTIONS (2)
  - Haemorrhagic diathesis [Recovered/Resolved with Sequelae]
  - Retinal detachment [Not Recovered/Not Resolved]

NARRATIVE: CASE EVENT DATE: 20240510
